FAERS Safety Report 9144500 (Version 1)
Quarter: 2013Q1

REPORT INFORMATION
  Report Type: Spontaneous
  Country: DE (occurrence: DE)
  Receive Date: 20130306
  Receipt Date: 20130306
  Transmission Date: 20140127
  Serious: Yes (Other)
  Sender: FDA-Public Use
  Company Number: DE-TEVA-387736GER

PATIENT
  Age: 38 Year
  Sex: Female
  Weight: 45 kg

DRUGS (2)
  1. GABAPENTIN [Suspect]
     Indication: EPILEPSY
     Dosage: 300 MILLIGRAM DAILY;
     Route: 048
     Dates: start: 201110
  2. VIMPAT [Suspect]
     Indication: EPILEPSY
     Dosage: 200 MILLIGRAM DAILY;
     Route: 048
     Dates: start: 201101

REACTIONS (1)
  - Abortion spontaneous [Recovered/Resolved]
